FAERS Safety Report 13310516 (Version 1)
Quarter: 2017Q1

REPORT INFORMATION
  Report Type: Spontaneous
  Country: US (occurrence: US)
  Receive Date: 20170309
  Receipt Date: 20170309
  Transmission Date: 20170428
  Serious: Yes (Other)
  Sender: FDA-Public Use
  Company Number: US-PFIZER INC-2017101506

PATIENT
  Age: 62 Year
  Sex: Male

DRUGS (2)
  1. CEFAZOLIN [Suspect]
     Active Substance: CEFAZOLIN
     Indication: SEPSIS
     Dosage: 2 G, 4X/DAY (EVERY SIX HOURS)
     Route: 042
  2. CEFAZOLIN [Suspect]
     Active Substance: CEFAZOLIN
     Dosage: 1 G, 2X/DAY (EVERY TWELVE HOURS)
     Route: 042

REACTIONS (1)
  - Encephalopathy [Recovered/Resolved]
